FAERS Safety Report 7542418-4 (Version None)
Quarter: 2011Q2

REPORT INFORMATION
  Report Type: 
  Country: None (occurrence: None)
  Receive Date: 20110524
  Receipt Date: 20110127
  Transmission Date: 20111010
  Serious: No
  Sender: FDA-Public Use
  Company Number: 010091

PATIENT
  Sex: Male

DRUGS (5)
  1. CIMZIA [Suspect]
     Indication: CROHN'S DISEASE
     Dosage: 400 MG 1X/MONTH SUBCUTANEOUS
     Route: 058
     Dates: start: 20090924
  2. CIMZIA [Suspect]
     Indication: CROHN'S DISEASE
     Dosage: 400 MG 1X/MONTH SUBCUTANEOUS
     Route: 058
     Dates: start: 20100610
  3. CIMZIA [Suspect]
     Indication: CROHN'S DISEASE
     Dosage: 400 MG 1X/2 WEEKS SUBCUTANEOUS
     Route: 058
     Dates: start: 20100723
  4. CIMZIA [Suspect]
     Indication: CROHN'S DISEASE
     Dosage: 400 MG 1X/3 WEEKS SUBCUTANEOUS
     Route: 058
     Dates: start: 20101126
  5. CIMZIA [Suspect]
     Indication: CROHN'S DISEASE
     Dosage: 400 MG 1X/MONTH SUBCUTANEOUS
     Route: 058
     Dates: start: 20100520

REACTIONS (9)
  - DIARRHOEA HAEMORRHAGIC [None]
  - ABDOMINAL DISTENSION [None]
  - HAEMATOCHEZIA [None]
  - RECTAL HAEMORRHAGE [None]
  - MUCOUS STOOLS [None]
  - ASTHENIA [None]
  - FATIGUE [None]
  - DYSPNOEA [None]
  - ABDOMINAL PAIN [None]
